FAERS Safety Report 5207228-1 (Version None)
Quarter: 2007Q1

REPORT INFORMATION
  Report Type: 
  Country: None (occurrence: None)
  Receive Date: 20070112
  Receipt Date: 20070110
  Transmission Date: 20070707
  Serious: Yes (Hospitalization)
  Sender: FDA-Public Use
  Company Number: 2006AP05472

PATIENT
  Age: 23648 Day
  Sex: Male
  Weight: 61 kg

DRUGS (2)
  1. IRESSA [Suspect]
     Indication: CHRONIC OBSTRUCTIVE PULMONARY DISEASE
     Route: 048
     Dates: start: 20061024, end: 20061115
  2. BRICANYL [Concomitant]
     Dosage: RESCUE MEDICATION
     Route: 055
     Dates: start: 20061012, end: 20061116

REACTIONS (1)
  - ALVEOLITIS ALLERGIC [None]
